FAERS Safety Report 9331689 (Version 1)
Quarter: 2013Q2

REPORT INFORMATION
  Report Type: Spontaneous
  Country: CN (occurrence: CN)
  Receive Date: 20130605
  Receipt Date: 20130605
  Transmission Date: 20140414
  Serious: Yes (Other)
  Sender: FDA-Public Use
  Company Number: CN-ASTRAZENECA-2013SE40107

PATIENT
  Sex: Female
  Weight: 60 kg

DRUGS (1)
  1. FELODIPINE [Suspect]
     Indication: RAYNAUD^S PHENOMENON
     Route: 048
     Dates: start: 20120402, end: 20120402

REACTIONS (4)
  - Dizziness [Recovered/Resolved]
  - Oedema [Recovered/Resolved]
  - Flushing [Recovered/Resolved]
  - Coordination abnormal [Recovered/Resolved]
